FAERS Safety Report 8992064 (Version 3)
Quarter: 2013Q1

REPORT INFORMATION
  Report Type: Spontaneous
  Country: IE (occurrence: IE)
  Receive Date: 20121231
  Receipt Date: 20130312
  Transmission Date: 20140127
  Serious: Yes (Hospitalization, Other)
  Sender: FDA-Public Use
  Company Number: IE-AMGEN-IRLSP2012083572

PATIENT
  Age: 49 Year
  Sex: Female

DRUGS (6)
  1. NEULASTA [Suspect]
     Indication: PRODUCT USED FOR UNKNOWN INDICATION
     Dosage: 6 MG, Q3WK
     Route: 058
     Dates: start: 20121130
  2. CARBOPLATIN [Suspect]
     Indication: CERVIX CARCINOMA RECURRENT
     Dosage: UNK, 3 WEEKLY
     Route: 042
     Dates: start: 20121129
  3. PACLITAXEL [Concomitant]
     Indication: CERVIX CARCINOMA RECURRENT
     Dosage: 135 MG/M2, 3 WEEKLY
     Route: 042
     Dates: start: 20121129
  4. LANSOPRAZOLE [Concomitant]
     Indication: PROPHYLAXIS AGAINST GASTROINTESTINAL ULCER
     Dosage: 30 MG, UNK
     Route: 048
     Dates: start: 20121128
  5. DEXAMETHASONE [Concomitant]
     Indication: PROPHYLAXIS
     Dosage: 40 MG OF 1 THEN 8 MG
     Route: 048
     Dates: start: 20121128, end: 20121202
  6. DOMPERIDONE [Concomitant]
     Indication: PROPHYLAXIS
     Dosage: UNK UNK, PRN
     Route: 048
     Dates: start: 20121128

REACTIONS (1)
  - Deep vein thrombosis [Not Recovered/Not Resolved]
